FAERS Safety Report 8540150-1 (Version None)
Quarter: 2012Q2

REPORT INFORMATION
  Report Type: 
  Country: None (occurrence: None)
  Receive Date: 20120416
  Receipt Date: 20080428
  Transmission Date: 20120825
  Serious: Yes (Other)
  Sender: FDA-Public Use
  Company Number: PHEH2008US03898

PATIENT
  Age: 87 Year
  Sex: Male
  Weight: 95.4 kg

DRUGS (1)
  1. DIOVAN [Suspect]
     Dosage: 80 MG, QD, ORAL
     Route: 048
     Dates: start: 20080326, end: 20080403

REACTIONS (1)
  - ANGIOEDEMA [None]
